FAERS Safety Report 8556184-7 (Version None)
Quarter: 2012Q3

REPORT INFORMATION
  Report Type: 
  Country: None (occurrence: None)
  Receive Date: 20120719
  Receipt Date: 20120703
  Transmission Date: 20120928
  Serious: Yes (Hospitalization, Other)
  Sender: FDA-Public Use
  Company Number: ALL020120013

PATIENT
  Age: 62 Year
  Sex: Male

DRUGS (1)
  1. ALLOPURINOL [Suspect]
     Indication: GOUT

REACTIONS (4)
  - COMPARTMENT SYNDROME [None]
  - RENAL IMPAIRMENT [None]
  - LIVER DISORDER [None]
  - TOXIC EPIDERMAL NECROLYSIS [None]
